FAERS Safety Report 13712730 (Version 1)
Quarter: 2017Q3

REPORT INFORMATION
  Report Type: Spontaneous
  Country: US (occurrence: US)
  Receive Date: 20170703
  Receipt Date: 20170703
  Transmission Date: 20171127
  Serious: No
  Sender: FDA-Public Use
  Company Number: US-BAYER-2017-125907

PATIENT
  Age: 65 Year
  Sex: Male

DRUGS (2)
  1. PRAZIQUANTEL [Suspect]
     Active Substance: PRAZIQUANTEL
     Indication: ECHINOCOCCIASIS
  2. ALBENDAZOLE [Concomitant]
     Active Substance: ALBENDAZOLE
     Indication: ECHINOCOCCIASIS
     Route: 048

REACTIONS (2)
  - Off label use [None]
  - Product use in unapproved indication [None]
